FAERS Safety Report 18468486 (Version 4)
Quarter: 2020Q4

REPORT INFORMATION
  Report Type: Spontaneous
  Country: HR (occurrence: HR)
  Receive Date: 20201105
  Receipt Date: 20201120
  Transmission Date: 20210114
  Serious: Yes (Hospitalization)
  Sender: FDA-Public Use
  Company Number: HR-PFIZER INC-2020427211

PATIENT
  Sex: Male
  Weight: 112 kg

DRUGS (37)
  1. EPLERENONE. [Suspect]
     Active Substance: EPLERENONE
     Dosage: 25 MILLIGRAM, (2015-2016)
     Route: 065
     Dates: start: 2015, end: 2016
  2. ELIQUIS [Suspect]
     Active Substance: APIXABAN
     Dosage: 5 MILLIGRAM, BID
     Route: 065
     Dates: start: 202009
  3. BISOPROLOL [Suspect]
     Active Substance: BISOPROLOL
     Dosage: 5 MG, BID
     Route: 065
     Dates: start: 2019
  4. ELIQUIS [Suspect]
     Active Substance: APIXABAN
     Dosage: 5 MILLIGRAM, BID
     Route: 065
     Dates: start: 2020
  5. ROSUVASTATIN. [Suspect]
     Active Substance: ROSUVASTATIN
     Dosage: 1 DF
     Route: 065
     Dates: start: 2018
  6. BISOPROLOL [Suspect]
     Active Substance: BISOPROLOL
     Dosage: 5 MG, BID
     Route: 065
     Dates: start: 2020
  7. ENTRESTO [Suspect]
     Active Substance: SACUBITRIL\VALSARTAN
     Dosage: 200 MG, BID (97/103 MG)
     Route: 065
     Dates: start: 202009
  8. ROSUVASTATIN. [Suspect]
     Active Substance: ROSUVASTATIN
     Dosage: 1 DF, QD (IN THE EVENING)
     Route: 065
     Dates: start: 2016
  9. FUROSEMIDE. [Suspect]
     Active Substance: FUROSEMIDE
     Dosage: 40 MG, QD (2015-2016)
     Route: 065
  10. EPLERENONE. [Suspect]
     Active Substance: EPLERENONE
     Dosage: 25 MILLIGRAM
     Route: 065
     Dates: start: 2016
  11. EPLERENONE. [Suspect]
     Active Substance: EPLERENONE
     Dosage: 50 MILLIGRAM
     Route: 065
     Dates: start: 2018
  12. EPLERENONE. [Suspect]
     Active Substance: EPLERENONE
     Dosage: 50 MILLIGRAM
     Route: 065
     Dates: start: 202009
  13. AMIODARONE [Suspect]
     Active Substance: AMIODARONE
     Dosage: 1 DF
     Dates: start: 202009
  14. AMIODARONE [Suspect]
     Active Substance: AMIODARONE
     Dosage: 1 DF, UNKNOWN
     Dates: start: 2020
  15. FUROSEMIDE. [Suspect]
     Active Substance: FUROSEMIDE
     Dosage: 40 MG, PRN
     Route: 065
     Dates: start: 202009
  16. FUROSEMIDE. [Suspect]
     Active Substance: FUROSEMIDE
     Dosage: 40 MG, PRN
     Route: 065
     Dates: start: 2020
  17. FUROSEMIDE. [Suspect]
     Active Substance: FUROSEMIDE
     Dosage: 40 MG, BID
     Route: 065
     Dates: start: 2019
  18. BISOPROLOL [Suspect]
     Active Substance: BISOPROLOL
     Dosage: 5 MG, BID (2015-2016)
     Route: 065
     Dates: start: 2015, end: 2016
  19. BISOPROLOL [Suspect]
     Active Substance: BISOPROLOL
     Dosage: 5 MG, BID
     Route: 065
     Dates: start: 202009
  20. AMIODARONE [Suspect]
     Active Substance: AMIODARONE
     Dosage: 1 DF, UNKNOWN
     Route: 065
     Dates: start: 2019
  21. ROSUVASTATIN. [Suspect]
     Active Substance: ROSUVASTATIN
     Dosage: 1 DF
     Route: 065
     Dates: start: 2020
  22. FUROSEMIDE. [Suspect]
     Active Substance: FUROSEMIDE
     Dosage: 40 MG, BID
     Route: 065
     Dates: start: 2016
  23. ELIQUIS [Suspect]
     Active Substance: APIXABAN
     Dosage: 5 MILLIGRAM, BID
     Route: 065
     Dates: start: 2016
  24. ELIQUIS [Suspect]
     Active Substance: APIXABAN
     Dosage: 5 MILLIGRAM, BID
     Route: 065
     Dates: start: 2019
  25. AMIODARONE [Suspect]
     Active Substance: AMIODARONE
     Dosage: 1 DF, QD (IN THE MORNING)
     Dates: start: 2016
  26. ROSUVASTATIN. [Suspect]
     Active Substance: ROSUVASTATIN
     Dosage: 1 DF
     Route: 065
     Dates: start: 2019
  27. BISOPROLOL [Suspect]
     Active Substance: BISOPROLOL
     Dosage: 5 MG, BID
     Route: 065
     Dates: start: 2016
  28. ENTRESTO [Suspect]
     Active Substance: SACUBITRIL\VALSARTAN
     Dosage: 200 MG, BID (97/103 MG)
     Route: 065
     Dates: start: 2019
  29. EPLERENONE. [Suspect]
     Active Substance: EPLERENONE
     Dosage: 50 MILLIGRAM
     Route: 065
     Dates: start: 2020
  30. EPLERENONE. [Suspect]
     Active Substance: EPLERENONE
     Dosage: 50 MILLIGRAM, UNKNOWN
     Route: 065
     Dates: start: 2019
  31. AMIODARONE [Suspect]
     Active Substance: AMIODARONE
     Dosage: 1 DF, UNKNOWN
     Dates: start: 2018
  32. ROSUVASTATIN. [Suspect]
     Active Substance: ROSUVASTATIN
     Dosage: 1 DF
     Route: 065
     Dates: start: 202009
  33. ROSUVASTATIN. [Suspect]
     Active Substance: ROSUVASTATIN
     Dosage: 1 DF, QD (IN THE EVENING) (2015-2016)
     Route: 065
     Dates: start: 2015, end: 2016
  34. FUROSEMIDE. [Suspect]
     Active Substance: FUROSEMIDE
     Dosage: 500 MG, BID (QUARTER OF A TABLET)
     Route: 065
     Dates: start: 2018
  35. ENTRESTO [Suspect]
     Active Substance: SACUBITRIL\VALSARTAN
     Dosage: 100 MG, BID (49/51 MG)
     Route: 065
     Dates: start: 2018
  36. ENTRESTO [Suspect]
     Active Substance: SACUBITRIL\VALSARTAN
     Dosage: 200 MG, BID (97/103 MG)
     Route: 065
     Dates: start: 2020
  37. ELIQUIS [Suspect]
     Active Substance: APIXABAN
     Dosage: 5 MILLIGRAM, BID
     Route: 065
     Dates: start: 2018

REACTIONS (4)
  - Weight decreased [Unknown]
  - Chest discomfort [Unknown]
  - N-terminal prohormone brain natriuretic peptide increased [Unknown]
  - Atrial tachycardia [Recovered/Resolved]

NARRATIVE: CASE EVENT DATE: 2019
